FAERS Safety Report 12023358 (Version 1)
Quarter: 2016Q1

REPORT INFORMATION
  Report Type: Report from Study
  Country: US (occurrence: US)
  Receive Date: 20160206
  Receipt Date: 20160206
  Transmission Date: 20160526
  Serious: Yes (Other)
  Sender: FDA-Public Use
  Company Number: US-ABBVIE-15K-163-1475414-00

PATIENT
  Age: 30 Year
  Sex: Male

DRUGS (2)
  1. HUMIRA [Suspect]
     Active Substance: ADALIMUMAB
     Route: 065
     Dates: start: 20150930
  2. HUMIRA [Suspect]
     Active Substance: ADALIMUMAB
     Indication: PSORIASIS
     Route: 065
     Dates: start: 20111026

REACTIONS (13)
  - Diarrhoea [Unknown]
  - HIV infection [Not Recovered/Not Resolved]
  - Road traffic accident [Recovering/Resolving]
  - Psoriasis [Recovering/Resolving]
  - Nausea [Unknown]
  - Thirst [Unknown]
  - Rib fracture [Recovering/Resolving]
  - Drug specific antibody present [Unknown]
  - Urine output decreased [Unknown]
  - Abdominal pain upper [Unknown]
  - Tremor [Unknown]
  - Psoriasis [Not Recovered/Not Resolved]
  - Cough [Unknown]

NARRATIVE: CASE EVENT DATE: 20111223
